FAERS Safety Report 8105174 (Version 8)
Quarter: 2013Q2

REPORT INFORMATION
  Report Type: Spontaneous
  Country: US (occurrence: US)
  Receive Date: 20110825
  Receipt Date: 20130419
  Transmission Date: 20140414
  Serious: Yes (Hospitalization, Other)
  Sender: FDA-Public Use
  Company Number: US-BIOGENIDEC-2011BI031172

PATIENT
  Age: 58 Year
  Sex: Female
  Weight: 48 kg

DRUGS (6)
  1. AVONEX [Suspect]
     Indication: MULTIPLE SCLEROSIS
     Route: 030
     Dates: start: 20110502, end: 201209
  2. NUVIGIL [Concomitant]
     Indication: FATIGUE
  3. LYRICA [Concomitant]
     Indication: FIBROMYALGIA
     Route: 048
  4. ROPINIROLE [Concomitant]
     Dates: start: 2008
  5. CLONAZEPAM [Concomitant]
     Dates: start: 2008
  6. AMBIEN [Concomitant]
     Indication: MULTIPLE SCLEROSIS

REACTIONS (35)
  - Water intoxication [Recovered/Resolved]
  - Neoplasm malignant [Unknown]
  - Polydipsia [Recovered/Resolved]
  - Multiple sclerosis relapse [Recovered/Resolved]
  - Visual impairment [Not Recovered/Not Resolved]
  - Hypoaesthesia [Not Recovered/Not Resolved]
  - Muscle strain [Recovered/Resolved]
  - Fall [Recovered/Resolved]
  - Pallor [Not Recovered/Not Resolved]
  - Musculoskeletal disorder [Recovered/Resolved]
  - Mean cell haemoglobin increased [Unknown]
  - Blood creatinine decreased [Unknown]
  - Protein total decreased [Recovered/Resolved]
  - Mean cell volume increased [Unknown]
  - Lymphocyte count decreased [Unknown]
  - Red blood cell abnormality [Unknown]
  - Blood chloride decreased [Unknown]
  - Central nervous system lesion [Unknown]
  - Hepatic enzyme decreased [Unknown]
  - Nausea [Recovered/Resolved]
  - Influenza like illness [Recovered/Resolved]
  - Fatigue [Recovered/Resolved]
  - Paraesthesia [Not Recovered/Not Resolved]
  - Drug ineffective [Not Recovered/Not Resolved]
  - Alopecia [Unknown]
  - Haemoglobin decreased [Unknown]
  - White blood cell count decreased [Unknown]
  - Red blood cell count decreased [Unknown]
  - Insomnia [Unknown]
  - Dyspnoea [Not Recovered/Not Resolved]
  - Haematocrit decreased [Unknown]
  - Blood alkaline phosphatase increased [Unknown]
  - Aspartate aminotransferase increased [Unknown]
  - Vomiting [Unknown]
  - Malaise [Unknown]
